FAERS Safety Report 4667225-1 (Version None)
Quarter: 2005Q2

REPORT INFORMATION
  Report Type: 
  Country: None (occurrence: None)
  Receive Date: 20050520
  Receipt Date: 20050103
  Transmission Date: 20051028
  Serious: No
  Sender: FDA-Public Use
  Company Number: US-BRISTOL-MYERS SQUIBB COMPANY-12811667

PATIENT
  Age: 55 Year
  Sex: Male

DRUGS (3)
  1. SINEMET [Suspect]
     Indication: PARKINSON'S DISEASE
     Dosage: DOSING 50-100 MG
     Route: 048
     Dates: start: 19920101
  2. MIRAPEX [Concomitant]
  3. WELLBUTRIN [Concomitant]

REACTIONS (1)
  - PATHOLOGICAL GAMBLING [None]
